FAERS Safety Report 25282000 (Version 1)
Quarter: 2025Q2

REPORT INFORMATION
  Report Type: Spontaneous
  Country: ES (occurrence: ES)
  Receive Date: 20250508
  Receipt Date: 20250508
  Transmission Date: 20250717
  Serious: Yes (Death, Hospitalization, Other)
  Sender: NOVITIUM PHARMA
  Company Number: ES-NOVITIUMPHARMA-2025ESNVP01076

PATIENT
  Age: 65 Year
  Sex: Female

DRUGS (10)
  1. HYDROXYCHLOROQUINE SULFATE [Suspect]
     Active Substance: HYDROXYCHLOROQUINE SULFATE
     Indication: Scleroderma overlap syndrome
  2. LOSARTAN [Concomitant]
     Active Substance: LOSARTAN
     Indication: Hypertension
  3. AMIODARONE [Concomitant]
     Active Substance: AMIODARONE
     Indication: Hypertension
  4. BISOPROLOL [Concomitant]
     Active Substance: BISOPROLOL
     Indication: Hypertension
  5. HYDROCHLOROTHIAZIDE [Concomitant]
     Active Substance: HYDROCHLOROTHIAZIDE
     Indication: Hypertension
  6. ACENOCOUMAROL [Concomitant]
     Active Substance: ACENOCOUMAROL
     Indication: Dyslipidaemia
  7. SIMVASTATIN [Concomitant]
     Active Substance: SIMVASTATIN
     Indication: Dyslipidaemia
  8. BORTEZOMIB [Concomitant]
     Active Substance: BORTEZOMIB
     Indication: Monoclonal gammopathy
  9. CYCLOPHOSPHAMIDE [Concomitant]
     Active Substance: CYCLOPHOSPHAMIDE
     Indication: Monoclonal gammopathy
  10. DEXAMETHASONE [Concomitant]
     Active Substance: DEXAMETHASONE
     Indication: Monoclonal gammopathy

REACTIONS (3)
  - Acute respiratory distress syndrome [Fatal]
  - Interstitial lung disease [Fatal]
  - Renal phospholipidosis [Unknown]
